FAERS Safety Report 4347684-4 (Version None)
Quarter: 2004Q1

REPORT INFORMATION
  Report Type: 
  Country: None (occurrence: None)
  Receive Date: 20040325
  Receipt Date: 20040123
  Transmission Date: 20041129
  Serious: No
  Sender: FDA-Public Use
  Company Number: USA040157421

PATIENT
  Age: 67 Year
  Sex: Male

DRUGS (1)
  1. FORTEO [Suspect]
     Dates: start: 20030501

REACTIONS (3)
  - ALOPECIA [None]
  - INJECTION SITE PAIN [None]
  - VISUAL ACUITY REDUCED [None]
